FAERS Safety Report 9198733 (Version 1)
Quarter: 2013Q1

REPORT INFORMATION
  Report Type: Spontaneous
  Country: CA (occurrence: CA)
  Receive Date: 20130329
  Receipt Date: 20130329
  Transmission Date: 20140127
  Serious: Yes (Other)
  Sender: FDA-Public Use
  Company Number: CA-PFIZER INC-2013097598

PATIENT
  Age: 45 Year
  Sex: Female

DRUGS (3)
  1. CELEBREX [Suspect]
     Indication: ARTHRITIS
     Dosage: 200 MG, 1X/DAY
     Dates: start: 20000131
  2. VIOXX [Suspect]
     Indication: ARTHRITIS
     Dosage: 25 MG, 1X/DAY
     Dates: start: 2000, end: 200410
  3. VIOXX [Suspect]
     Indication: PAIN

REACTIONS (2)
  - Arrhythmia [Unknown]
  - Headache [Unknown]
